FAERS Safety Report 6554360-6 (Version None)
Quarter: 2010Q1

REPORT INFORMATION
  Report Type: 
  Country: None (occurrence: None)
  Receive Date: 20100127
  Receipt Date: 20100121
  Transmission Date: 20100710
  Serious: Yes (Hospitalization)
  Sender: FDA-Public Use
  Company Number: B0609665A

PATIENT
  Sex: Female

DRUGS (6)
  1. LAMICTAL [Suspect]
     Indication: EPILEPSY
     Route: 048
     Dates: start: 20091110, end: 20091126
  2. PHENOBARBITAL TAB [Suspect]
     Indication: EPILEPSY
     Route: 048
  3. ALEVIATIN [Concomitant]
     Indication: EPILEPSY
     Dosage: 250MG PER DAY
     Route: 048
     Dates: start: 20080101
  4. EXCEGRAN [Concomitant]
     Indication: EPILEPSY
     Dosage: 320MG PER DAY
     Route: 048
  5. RIVOTRIL [Concomitant]
     Indication: EPILEPSY
     Dosage: .6MG PER DAY
     Route: 048
  6. ZARONTIN [Concomitant]
     Indication: EPILEPSY
     Dosage: 6ML PER DAY
     Route: 048

REACTIONS (5)
  - CONVULSION [None]
  - CYANOSIS [None]
  - ILL-DEFINED DISORDER [None]
  - JOINT ANKYLOSIS [None]
  - RESPIRATORY ARREST [None]
